FAERS Safety Report 7279359-6 (Version None)
Quarter: 2011Q1

REPORT INFORMATION
  Report Type: 
  Country: None (occurrence: None)
  Receive Date: 20110208
  Receipt Date: 20110131
  Transmission Date: 20110831
  Serious: Yes (Hospitalization)
  Sender: FDA-Public Use
  Company Number: SE-AMGEN-SWECT2011006783

PATIENT
  Age: 86 Year
  Sex: Female

DRUGS (3)
  1. PREDNISOLON                        /00016201/ [Concomitant]
     Dosage: 5 MG, UNK
  2. ARAVA [Concomitant]
     Dosage: 20 MG, UNK
  3. ETANERCEPT [Suspect]
     Indication: RHEUMATOID ARTHRITIS
     Dosage: 50 MG, QWK
     Route: 058
     Dates: start: 20100222, end: 20100701

REACTIONS (2)
  - RENAL IMPAIRMENT [None]
  - PNEUMONIA [None]
